FAERS Safety Report 9831112 (Version 3)
Quarter: 2014Q1

REPORT INFORMATION
  Report Type: Spontaneous
  Country: DE (occurrence: DE)
  Receive Date: 20140121
  Receipt Date: 20140207
  Transmission Date: 20141002
  Serious: Yes (Hospitalization, Other)
  Sender: FDA-Public Use
  Company Number: DE-AMGEN-DEUSP2014003109

PATIENT
  Age: 58 Year
  Sex: Female

DRUGS (2)
  1. PROLIA [Suspect]
     Indication: OSTEOPOROSIS POSTMENOPAUSAL
     Dosage: 60 MG, UNK
     Route: 058
     Dates: start: 201304
  2. CALCIUM/VITAMIN D3 [Concomitant]

REACTIONS (8)
  - Confusional state [Unknown]
  - Amnesia [Unknown]
  - Norovirus test positive [Unknown]
  - Cognitive disorder [Unknown]
  - Polyarthritis [Unknown]
  - Malaise [Unknown]
  - Kyphoscoliosis [Unknown]
  - Upper respiratory tract infection [Unknown]
